FAERS Safety Report 4412739-2 (Version None)
Quarter: 2004Q2

REPORT INFORMATION
  Report Type: 
  Country: None (occurrence: None)
  Receive Date: 20040630
  Receipt Date: 20040514
  Transmission Date: 20050107
  Serious: No
  Sender: FDA-Public Use
  Company Number: 04P-163-0260916-00

PATIENT
  Age: 78 Year
  Sex: Female
  Weight: 45.3597 kg

DRUGS (7)
  1. HUMIRA [Suspect]
     Indication: RHEUMATOID ARTHRITIS
     Dosage: 40 MG, 1 IN 2 WK, SUBCUTANEOUS
     Route: 058
     Dates: start: 20040403
  2. METHOTREXATE [Concomitant]
  3. DIGOXIN [Concomitant]
  4. METOPROLOL SUCCINATE [Concomitant]
  5. LOSARTAN POTASSIUM [Concomitant]
  6. FOLIC ACID [Concomitant]
  7. INSULIN [Concomitant]

REACTIONS (1)
  - PAIN IN EXTREMITY [None]
